FAERS Safety Report 16395294 (Version 1)
Quarter: 2019Q2

REPORT INFORMATION
  Report Type: Spontaneous
  Country: FR (occurrence: FR)
  Receive Date: 20190605
  Receipt Date: 20190605
  Transmission Date: 20190711
  Serious: Yes (Hospitalization)
  Sender: FDA-Public Use
  Company Number: FR-MYLANLABS-2019M1051515

PATIENT
  Age: 50 Year
  Sex: Male
  Weight: 62 kg

DRUGS (9)
  1. PROPOFOL. [Suspect]
     Active Substance: PROPOFOL
     Indication: PARATHYROIDECTOMY
     Dosage: 2307 MILLIGRAM, QD
     Route: 042
     Dates: start: 20180612, end: 20180612
  2. KETAMINE [Suspect]
     Active Substance: KETAMINE
     Indication: PARATHYROIDECTOMY
     Dosage: 20 MILLIGRAM, QD
     Route: 042
     Dates: start: 20180612, end: 20180612
  3. DEXAMETHASONE. [Suspect]
     Active Substance: DEXAMETHASONE
     Indication: PARATHYROIDECTOMY
     Dosage: 4 MILLIGRAM, QD
     Route: 042
     Dates: start: 20180612, end: 20180612
  4. OXYNORM [Suspect]
     Active Substance: OXYCODONE HYDROCHLORIDE
     Indication: PAIN
     Dosage: UNK
     Route: 042
     Dates: start: 20180612, end: 20180612
  5. REMIFENTANIL [Suspect]
     Active Substance: REMIFENTANIL
     Indication: PARATHYROIDECTOMY
     Dosage: 2452 MILLIGRAM, QD
     Route: 042
     Dates: start: 20180612, end: 20180612
  6. PARACETAMOL [Suspect]
     Active Substance: ACETAMINOPHEN
     Indication: PARATHYROIDECTOMY
     Dosage: 1 GRAM
     Route: 042
     Dates: start: 20180612, end: 20180614
  7. NEFOPAM [Suspect]
     Active Substance: NEFOPAM
     Indication: PARATHYROIDECTOMY
     Dosage: 20 MILLIGRAM, QD
     Route: 042
     Dates: start: 20180612, end: 20180612
  8. ATRACURIUM [Suspect]
     Active Substance: ATRACURIUM
     Indication: PARATHYROIDECTOMY
     Dosage: 30 MILLIGRAM, QD
     Route: 042
     Dates: start: 20180612, end: 20180612
  9. KETOPROFENE                        /00321701/ [Suspect]
     Active Substance: KETOPROFEN
     Indication: PARATHYROIDECTOMY
     Dosage: 100 MILLIGRAM, QD
     Route: 042
     Dates: start: 20180612, end: 20180612

REACTIONS (1)
  - Pancreatitis [Recovered/Resolved]

NARRATIVE: CASE EVENT DATE: 20180612
